FAERS Safety Report 24646702 (Version 4)
Quarter: 2025Q1

REPORT INFORMATION
  Report Type: Report from Study
  Country: US (occurrence: US)
  Receive Date: 20241121
  Receipt Date: 20250101
  Transmission Date: 20250409
  Serious: Yes (Other)
  Sender: ABBVIE
  Company Number: US-ABBVIE-6008466

PATIENT
  Age: 44 Year
  Sex: Female
  Weight: 64 kg

DRUGS (4)
  1. RINVOQ [Suspect]
     Active Substance: UPADACITINIB
     Indication: Crohn^s disease
     Route: 048
     Dates: start: 20230501, end: 20241104
  2. KIRKLAND SIGNATURE NAPROXEN SODIUM [Concomitant]
     Active Substance: NAPROXEN SODIUM
     Indication: Product used for unknown indication
     Route: 048
     Dates: start: 20240101
  3. VITAMIN D [Concomitant]
     Active Substance: VITAMIN D NOS
     Indication: Product used for unknown indication
     Dosage: PILL
     Route: 048
  4. VITAMIN B12 [Concomitant]
     Active Substance: CYANOCOBALAMIN
     Indication: Product used for unknown indication
     Dosage: DOSE: 1000 MCG/ML

REACTIONS (7)
  - Systemic lupus erythematosus [Unknown]
  - Platelet count increased [Recovered/Resolved]
  - Anaemia [Unknown]
  - Arthralgia [Unknown]
  - Lupus-like syndrome [Unknown]
  - Platelet count increased [Recovered/Resolved]
  - Platelet count increased [Unknown]

NARRATIVE: CASE EVENT DATE: 20230906
